FAERS Safety Report 5154090-1 (Version None)
Quarter: 2006Q4

REPORT INFORMATION
  Report Type: 
  Country: None (occurrence: None)
  Receive Date: 20061116
  Receipt Date: 20061116
  Transmission Date: 20070319
  Serious: No
  Sender: FDA-Public Use
  Company Number: None

PATIENT
  Age: 83 Year
  Sex: Male
  Weight: 65.3 kg

DRUGS (25)
  1. TERAZOSIN HCL [Suspect]
     Indication: PROSTATIC DISORDER
     Dosage: 2 MG QHS BY MOUTH
     Route: 048
     Dates: start: 20061004, end: 20061020
  2. FLUTICASONE PROP [Concomitant]
  3. IPRATROPIUM BROMIDE [Concomitant]
  4. FUROSEMIDE [Concomitant]
  5. LANOXIN [Concomitant]
  6. SPIRONOLACTONE [Concomitant]
  7. ALBUTEROL [Concomitant]
  8. CALCIUM 250MG/VITAMIN D [Concomitant]
  9. FLUTICASONE PROP [Concomitant]
  10. LISINOPRIL [Concomitant]
  11. ALOH/MGOH/SIMTH XTRA STRENGTH [Concomitant]
  12. ARTIFICIAL TEARS POLYVINYL ALCOHOL [Concomitant]
  13. ASPIRIN [Concomitant]
  14. BISACODYL [Concomitant]
  15. CIPROFLOXACIN HCL [Concomitant]
  16. CITALOPRAM HYDROBROMIDE [Concomitant]
  17. DILTIAZEM HCL [Concomitant]
  18. DM 10/GUAIFENSEN [Concomitant]
  19. COLON ELECTROLYTE LAVAGE PWD FOR SOLN [Concomitant]
  20. NEOMYCIN SULFATE [Concomitant]
  21. PHOSPHATES ENEMA [Concomitant]
  22. ERYTHROMYCIN STEARATE [Concomitant]
  23. LORAZEPAM [Concomitant]
  24. TRAMADOL HCL [Concomitant]
  25. GUAIFENESIN 100MG/CODEINE 10MG/5ML SYRUP [Concomitant]

REACTIONS (1)
  - DIZZINESS [None]
